FAERS Safety Report 5378897-0 (Version None)
Quarter: 2007Q3

REPORT INFORMATION
  Report Type: 
  Country: None (occurrence: None)
  Receive Date: 20070705
  Receipt Date: 20070625
  Transmission Date: 20080115
  Serious: Yes (Other)
  Sender: FDA-Public Use
  Company Number: US-SANOFI-SYNTHELABO-A03200704246

PATIENT
  Sex: Female
  Weight: 60.8 kg

DRUGS (7)
  1. BISOPROLOL [Concomitant]
     Dosage: UNK
     Route: 048
  2. BISOPROLOL [Concomitant]
     Dosage: UNK
     Route: 048
  3. HYDROCHLOROTHIAZIDE [Concomitant]
     Dosage: UNK
     Route: 048
  4. CLONIDINE [Concomitant]
     Dosage: UNK
     Route: 065
     Dates: start: 19900101
  5. ESTROGENS SOL/INJ [Concomitant]
     Dosage: UNK
     Route: 065
     Dates: start: 19880101
  6. AMBIEN CR [Suspect]
     Indication: INSOMNIA
     Dosage: UNK
     Route: 048
     Dates: start: 20060101, end: 20060101
  7. REBIF [Suspect]
     Indication: MULTIPLE SCLEROSIS
     Route: 058
     Dates: start: 20021209

REACTIONS (2)
  - CONVULSION [None]
  - LOSS OF CONSCIOUSNESS [None]
